FAERS Safety Report 15613702 (Version 1)
Quarter: 2018Q4

REPORT INFORMATION
  Report Type: Spontaneous
  Country: FR (occurrence: FR)
  Receive Date: 20181113
  Receipt Date: 20181113
  Transmission Date: 20190205
  Serious: Yes (Hospitalization)
  Sender: FDA-Public Use
  Company Number: FR-MYLANLABS-2018M1085985

PATIENT
  Age: 93 Year
  Sex: Male
  Weight: 65 kg

DRUGS (4)
  1. TOVIAZ [Suspect]
     Active Substance: FESOTERODINE FUMARATE
     Indication: DYSURIA
     Dosage: UNK
     Route: 048
  2. RAMIPRIL. [Suspect]
     Active Substance: RAMIPRIL
     Indication: HYPERTENSION
     Dosage: UNK
     Route: 048
  3. AVODART [Suspect]
     Active Substance: DUTASTERIDE
     Indication: DYSURIA
     Dosage: UNK
     Route: 048
  4. UROREC [Suspect]
     Active Substance: SILODOSIN
     Indication: DYSURIA
     Dosage: UNK
     Route: 048

REACTIONS (2)
  - Product administration error [Recovered/Resolved]
  - Fall [Recovered/Resolved]

NARRATIVE: CASE EVENT DATE: 20180206
